FAERS Safety Report 5922521-2 (Version None)
Quarter: 2008Q4

REPORT INFORMATION
  Report Type: 
  Country: None (occurrence: None)
  Receive Date: 20081017
  Receipt Date: 20081009
  Transmission Date: 20090506
  Serious: Yes (Hospitalization)
  Sender: FDA-Public Use
  Company Number: PHHY2008DE24383

PATIENT
  Sex: Female

DRUGS (1)
  1. EXELON [Suspect]
     Indication: DEMENTIA ALZHEIMER'S TYPE
     Dosage: 4.6 MG/24 HR
     Route: 062
     Dates: start: 20071219

REACTIONS (4)
  - APHASIA [None]
  - DIZZINESS [None]
  - FALL [None]
  - SLEEP DISORDER [None]
